FAERS Safety Report 7849549-X (Version None)
Quarter: 2011Q4

REPORT INFORMATION
  Report Type: 
  Country: None (occurrence: None)
  Receive Date: 20111024
  Receipt Date: 20111012
  Transmission Date: 20120403
  Serious: Yes (Other)
  Sender: FDA-Public Use
  Company Number: US-GDP-11412078

PATIENT
  Age: 20 Year
  Sex: Male

DRUGS (1)
  1. EPIDUO [Suspect]
     Indication: ACNE
     Dosage: (1 DF QD TOPICAL)
     Route: 061
     Dates: start: 20110819

REACTIONS (2)
  - LUPUS-LIKE SYNDROME [None]
  - ARTHRALGIA [None]
